FAERS Safety Report 15837414 (Version 1)
Quarter: 2019Q1

REPORT INFORMATION
  Report Type: Spontaneous
  Country: DE (occurrence: DE)
  Receive Date: 20190117
  Receipt Date: 20190117
  Transmission Date: 20190417
  Serious: Yes (Other)
  Sender: FDA-Public Use
  Company Number: DE-009507513-1901DEU005511

PATIENT
  Age: 70 Year
  Sex: Male

DRUGS (1)
  1. LORZAAR START 12,5 MG FILMTABLETTEN [Suspect]
     Active Substance: LOSARTAN POTASSIUM
     Dosage: UNK
     Route: 048
     Dates: start: 2018

REACTIONS (1)
  - Bradycardia [Unknown]
